FAERS Safety Report 8162821-1 (Version None)
Quarter: 2012Q1

REPORT INFORMATION
  Report Type: 
  Country: None (occurrence: None)
  Receive Date: 20120224
  Receipt Date: 20120216
  Transmission Date: 20120608
  Serious: Yes (Hospitalization, Other)
  Sender: FDA-Public Use
  Company Number: ZA-ABBOTT-12P-143-0905053-00

PATIENT
  Sex: Male

DRUGS (2)
  1. LAMIVUDINE + ZIDOVUDINE [Concomitant]
     Indication: MATERNAL EXPOSURE TIMING UNSPECIFIED
     Route: 064
  2. LOPINAVIR/RITONAVIR [Suspect]
     Indication: MATERNAL EXPOSURE TIMING UNSPECIFIED
     Route: 064

REACTIONS (3)
  - PREMATURE BABY [None]
  - LOW BIRTH WEIGHT BABY [None]
  - FOETAL EXPOSURE DURING PREGNANCY [None]
